FAERS Safety Report 11309193 (Version 1)
Quarter: 2015Q3

REPORT INFORMATION
  Report Type: Report from Study
  Country: CA (occurrence: CA)
  Receive Date: 20150724
  Receipt Date: 20150724
  Transmission Date: 20151125
  Serious: Yes (Hospitalization)
  Sender: FDA-Public Use
  Company Number: CA-TOLMAR, INC.-2015CA006582

PATIENT

DRUGS (1)
  1. ELIGARD [Suspect]
     Active Substance: LEUPROLIDE ACETATE
     Indication: PROSTATE CANCER
     Dosage: 30 MG, FOUR MONTH
     Route: 065
     Dates: start: 20081104

REACTIONS (5)
  - Malaise [Unknown]
  - Diarrhoea [Unknown]
  - Arthralgia [Unknown]
  - Pneumonia [Unknown]
  - Joint swelling [Unknown]

NARRATIVE: CASE EVENT DATE: 20150718
